FAERS Safety Report 8467886-5 (Version None)
Quarter: 2012Q2

REPORT INFORMATION
  Report Type: 
  Country: None (occurrence: None)
  Receive Date: 20120626
  Receipt Date: 20120613
  Transmission Date: 20120825
  Serious: Yes (Death)
  Sender: FDA-Public Use
  Company Number: US-BAYER-2012-059184

PATIENT
  Age: 51 Year
  Sex: Male

DRUGS (4)
  1. CLOPIDOGREL [Suspect]
     Indication: ANEURYSM REPAIR
     Dosage: 75 MG, QD
     Route: 048
  2. ASPIRIN [Suspect]
     Indication: INTRACRANIAL ANEURYSM
     Dosage: 81 MG, QD
     Route: 048
  3. ASPIRIN [Suspect]
     Indication: ANEURYSM REPAIR
  4. CLOPIDOGREL [Suspect]
     Indication: INTRACRANIAL ANEURYSM
     Dosage: 600 MG, ONCE, LOADING DOSE VIA NASOGASTRIC TUBE
     Route: 048

REACTIONS (1)
  - HAEMORRHAGE INTRACRANIAL [None]
